FAERS Safety Report 9105994 (Version 2)
Quarter: 2013Q2

REPORT INFORMATION
  Report Type: Spontaneous
  Country: FI (occurrence: FI)
  Receive Date: 20130220
  Receipt Date: 20130408
  Transmission Date: 20140414
  Serious: Yes (Hospitalization, Other)
  Sender: FDA-Public Use
  Company Number: FI-PFIZER INC-2013063199

PATIENT
  Sex: Male

DRUGS (6)
  1. LIPITOR [Suspect]
     Dosage: 20 MG
  2. SIMVASTATIN [Suspect]
     Dosage: 10 MG
  3. SELOKEN ZOC [Suspect]
     Dosage: 47.5 MG
  4. COZAAR [Suspect]
     Dosage: 50 MG
  5. ISMOX [Suspect]
     Dosage: 10 MG
  6. PRAVACHOL [Suspect]
     Dosage: 20 MG

REACTIONS (9)
  - Heart rate decreased [Recovered/Resolved]
  - Pain in extremity [Recovered/Resolved]
  - Pain in extremity [Recovered/Resolved]
  - Back pain [Recovered/Resolved]
  - Diabetes mellitus [Unknown]
  - Cough [Recovered/Resolved]
  - Blood pressure abnormal [Unknown]
  - Thyroid disorder [Unknown]
  - Feeling abnormal [None]
